FAERS Safety Report 8225019-4 (Version None)
Quarter: 2012Q1

REPORT INFORMATION
  Report Type: 
  Country: None (occurrence: None)
  Receive Date: 20120321
  Receipt Date: 20120307
  Transmission Date: 20120608
  Serious: Yes (Hospitalization)
  Sender: FDA-Public Use
  Company Number: US-ROCHE-1049792

PATIENT

DRUGS (1)
  1. KLONOPIN [Suspect]
     Indication: CONVULSION

REACTIONS (1)
  - GASTROSTOMY TUBE INSERTION [None]
